FAERS Safety Report 19557877 (Version 2)
Quarter: 2021Q3

REPORT INFORMATION
  Report Type: Spontaneous
  Country: JP (occurrence: JP)
  Receive Date: 20210715
  Receipt Date: 20210802
  Transmission Date: 20211014
  Serious: Yes (Death, Hospitalization)
  Sender: FDA-Public Use
  Company Number: JP-ELI_LILLY_AND_COMPANY-JP202107004916

PATIENT
  Age: 79 Year
  Sex: Male

DRUGS (1)
  1. TALTZ [Suspect]
     Active Substance: IXEKIZUMAB
     Indication: PRODUCT USED FOR UNKNOWN INDICATION
     Dosage: 80 MG, UNKNOWN
     Route: 058
     Dates: start: 20181001, end: 20210528

REACTIONS (3)
  - Metastases to bone [Fatal]
  - Lung adenocarcinoma stage IV [Fatal]
  - Metastases to kidney [Fatal]

NARRATIVE: CASE EVENT DATE: 20210519
